FAERS Safety Report 7703235 (Version 3)
Quarter: 2013Q2

REPORT INFORMATION
  Report Type: Report from Study
  Country: FR (occurrence: FR)
  Receive Date: 20101210
  Receipt Date: 20130430
  Transmission Date: 20140414
  Serious: Yes (Hospitalization, Other)
  Sender: FDA-Public Use
  Company Number: FR-ROCHE-745993

PATIENT
  Age: 68 Year
  Sex: Male
  Weight: 60 kg

DRUGS (10)
  1. PEG-INTERFERON ALFA 2A [Suspect]
     Indication: CHRONIC HEPATITIS C
     Dosage: LAST DOSE PRIOR TO SAE: 17 NOVEMBER 2010
     Route: 058
  2. RIBAVIRIN [Suspect]
     Indication: CHRONIC HEPATITIS C
     Dosage: LAST DOSE PRIOR TO SAE: 17 NOVEMBER 2010
     Route: 048
  3. EPOETIN BETA [Suspect]
     Indication: CHRONIC HEPATITIS C
     Dosage: DOSE: 3000 UI
     Route: 058
  4. XATRAL [Concomitant]
     Dosage: DRUG NAME REPORTED AS XATRAL LP 10 MG
     Route: 065
  5. ZOFENOPRIL [Concomitant]
     Dosage: DRUG NAME REPORTED AS ZAFENIL 15 MG
     Route: 065
  6. ALFUZOSINE [Concomitant]
     Dosage: DRUG NAME REPORTED AS ALFUZOSINE LP 10 MG
     Route: 065
  7. MUCOMYST [Concomitant]
  8. IMOVANE [Concomitant]
  9. CONTRAMAL [Concomitant]
  10. IZILOX [Concomitant]

REACTIONS (2)
  - Anaemia [Recovered/Resolved]
  - Lung disorder [Not Recovered/Not Resolved]
